FAERS Safety Report 8998035 (Version 5)
Quarter: 2018Q4

REPORT INFORMATION
  Report Type: Spontaneous
  Country: US (occurrence: US)
  Receive Date: 20130104
  Receipt Date: 20181214
  Transmission Date: 20190205
  Serious: Yes (Hospitalization, Other)
  Sender: FDA-Public Use
  Company Number: US-009507513-1203USA03525

PATIENT
  Sex: Female
  Weight: 91.61 kg

DRUGS (4)
  1. FOSAMAX [Suspect]
     Active Substance: ALENDRONATE SODIUM
     Indication: OSTEOPOROSIS
     Dosage: 10 MG, ONCE DAILY
     Route: 048
     Dates: start: 199905, end: 200203
  2. FOSAMAX [Suspect]
     Active Substance: ALENDRONATE SODIUM
     Indication: OSTEOPOROSIS
     Dosage: 70 MILLIGRAM
     Route: 048
     Dates: start: 200204, end: 200802
  3. HORMONES (UNSPECIFIED) [Concomitant]
     Active Substance: UNSPECIFIED INGREDIENT
     Dosage: UNK
     Dates: start: 1998, end: 2005
  4. ALENDRONATE SODIUM. [Suspect]
     Active Substance: ALENDRONATE SODIUM
     Indication: OSTEOPOROSIS
     Dosage: 70 MG, UNK
     Route: 048
     Dates: start: 200802, end: 201004

REACTIONS (36)
  - Basal cell carcinoma [Unknown]
  - Cystitis interstitial [Unknown]
  - Vitamin D deficiency [Unknown]
  - Primary hypothyroidism [Unknown]
  - Cataract [Unknown]
  - Post procedural fever [Unknown]
  - Cholecystectomy [Unknown]
  - Osteopenia [Unknown]
  - Body height decreased [Unknown]
  - Vomiting [Unknown]
  - Hip fracture [Recovered/Resolved]
  - Infection [Unknown]
  - Computerised tomogram abnormal [Unknown]
  - Cystitis interstitial [Unknown]
  - Appendicectomy [Unknown]
  - Hypertension [Unknown]
  - Constipation [Unknown]
  - Basal cell carcinoma [Unknown]
  - Micrographic skin surgery [Unknown]
  - Haemangioma of liver [Unknown]
  - Autoimmune thyroiditis [Unknown]
  - Seborrhoeic keratosis [Unknown]
  - Eczema [Unknown]
  - Hydronephrosis [Unknown]
  - Low turnover osteopathy [Unknown]
  - Nephrolithiasis [Unknown]
  - Breast calcifications [Unknown]
  - Mediastinal disorder [Unknown]
  - Nausea [Unknown]
  - Intramedullary rod insertion [Unknown]
  - Ureterolithiasis [Unknown]
  - Ureteric calculus removal [Unknown]
  - Renal colic [Unknown]
  - Culture urine positive [Unknown]
  - Haemoglobin decreased [Unknown]
  - Aortic aneurysm [Unknown]

NARRATIVE: CASE EVENT DATE: 1999
